FAERS Safety Report 10901185 (Version 1)
Quarter: 2015Q1

REPORT INFORMATION
  Report Type: Spontaneous
  Country: MX (occurrence: MX)
  Receive Date: 20150310
  Receipt Date: 20150310
  Transmission Date: 20150721
  Serious: Yes (Other)
  Sender: FDA-Public Use
  Company Number: PHHY2015MX028041

PATIENT
  Age: 82 Year
  Sex: Male

DRUGS (1)
  1. NILOTINIB [Suspect]
     Active Substance: NILOTINIB
     Indication: PRODUCT USED FOR UNKNOWN INDICATION
     Dosage: 300 MG (200 MG), Q12H
     Route: 065
     Dates: start: 20150218

REACTIONS (6)
  - Headache [Recovering/Resolving]
  - Loss of consciousness [Recovering/Resolving]
  - Xerosis [Recovering/Resolving]
  - Erythema multiforme [Recovering/Resolving]
  - Nausea [Recovering/Resolving]
  - Vertigo [Recovering/Resolving]

NARRATIVE: CASE EVENT DATE: 20150224
